FAERS Safety Report 12248637 (Version 1)
Quarter: 2016Q2

REPORT INFORMATION
  Report Type: Spontaneous
  Country: US (occurrence: None)
  Receive Date: 20160407
  Receipt Date: 20160407
  Transmission Date: 20160815
  Serious: No
  Sender: FDA-Public Use
  Company Number: None

PATIENT
  Sex: Female

DRUGS (2)
  1. TOUJEO [Suspect]
     Active Substance: INSULIN GLARGINE
  2. METFORMIN [Suspect]
     Active Substance: METFORMIN HYDROCHLORIDE

REACTIONS (15)
  - Toe amputation [None]
  - Gait disturbance [None]
  - Weight decreased [None]
  - Arthropathy [None]
  - Arthralgia [None]
  - Irritable bowel syndrome [None]
  - Therapy cessation [None]
  - Fatigue [None]
  - Feeling abnormal [None]
  - Injection site bruising [None]
  - Glycosylated haemoglobin increased [None]
  - Myalgia [None]
  - Sluggishness [None]
  - Needle issue [None]
  - Blood glucose fluctuation [None]
